FAERS Safety Report 15067738 (Version 1)
Quarter: 2018Q2

REPORT INFORMATION
  Report Type: Spontaneous
  Country: US (occurrence: US)
  Receive Date: 20180606
  Receipt Date: 20180606
  Transmission Date: 20180711
  Serious: Yes (Other)
  Sender: FDA-Public Use
  Company Number: None

PATIENT
  Age: 14 Year
  Sex: Male
  Weight: 78.93 kg

DRUGS (2)
  1. ARIPIPRAZOLE 10MG [Suspect]
     Active Substance: ARIPIPRAZOLE
     Indication: AUTISM SPECTRUM DISORDER
     Route: 048
     Dates: start: 20150815, end: 20180430
  2. ARIPIPRAZOLE 10MG [Suspect]
     Active Substance: ARIPIPRAZOLE
     Indication: AGGRESSION
     Route: 048
     Dates: start: 20180501, end: 20180529

REACTIONS (2)
  - Product substitution issue [None]
  - Abnormal behaviour [None]

NARRATIVE: CASE EVENT DATE: 20180505
